FAERS Safety Report 23522482 (Version 1)
Quarter: 2024Q1

REPORT INFORMATION
  Report Type: Spontaneous
  Country: US (occurrence: US)
  Receive Date: 20240214
  Receipt Date: 20240214
  Transmission Date: 20240410
  Serious: No
  Sender: FDA-Public Use
  Company Number: US-SA-SAC20240206001324

PATIENT
  Age: 28 Year
  Sex: Male

DRUGS (2)
  1. DUPIXENT [Suspect]
     Active Substance: DUPILUMAB
     Indication: Dermatitis atopic
     Dosage: 300 MG QOW
     Route: 058
     Dates: start: 202212
  2. INSULIN NOS [Concomitant]
     Active Substance: INSULIN NOS

REACTIONS (4)
  - Dry skin [Unknown]
  - Pruritus [Unknown]
  - Dizziness [Recovered/Resolved]
  - Arthralgia [Recovered/Resolved]
